FAERS Safety Report 13115101 (Version 2)
Quarter: 2017Q1

REPORT INFORMATION
  Report Type: Spontaneous
  Country: US (occurrence: US)
  Receive Date: 20170113
  Receipt Date: 20170306
  Transmission Date: 20170428
  Serious: Yes (Hospitalization, Other)
  Sender: FDA-Public Use
  Company Number: US-009507513-1701USA005949

PATIENT
  Age: 54 Year
  Sex: Male

DRUGS (5)
  1. PEGASPARGASE [Suspect]
     Active Substance: PEGASPARGASE
     Indication: B-CELL TYPE ACUTE LEUKAEMIA
     Dosage: UNK UNK, UNKNOWN
     Route: 065
     Dates: start: 20150930
  2. METHOTREXATE. [Suspect]
     Active Substance: METHOTREXATE
     Indication: B-CELL TYPE ACUTE LEUKAEMIA
     Dosage: UNK, UNKNOWN
     Route: 065
     Dates: start: 20150930
  3. VINCRISTINE SULFATE. [Suspect]
     Active Substance: VINCRISTINE SULFATE
     Indication: B-CELL TYPE ACUTE LEUKAEMIA
     Dosage: UNK, UNKNOWN
     Route: 065
     Dates: start: 20150930
  4. DEXAMETHASONE. [Suspect]
     Active Substance: DEXAMETHASONE
     Indication: BACK PAIN
     Dosage: UNK UNK, UNKNOWN
     Route: 065
     Dates: start: 201509
  5. PREDNISONE. [Suspect]
     Active Substance: PREDNISONE
     Indication: B-CELL TYPE ACUTE LEUKAEMIA
     Dosage: UNK UNK, UNKNOWN
     Route: 065
     Dates: start: 20150930

REACTIONS (7)
  - Blood bilirubin increased [Unknown]
  - Vomiting [Unknown]
  - Meningitis bacterial [Unknown]
  - Coagulopathy [Unknown]
  - Blood glucose increased [Unknown]
  - Nausea [Unknown]
  - Jaundice [Unknown]

NARRATIVE: CASE EVENT DATE: 201509
